FAERS Safety Report 9042589 (Version 1)
Quarter: 2013Q1

REPORT INFORMATION
  Report Type: Report from Study
  Country: US (occurrence: US)
  Receive Date: 20130129
  Receipt Date: 20130129
  Transmission Date: 20140127
  Serious: No
  Sender: FDA-Public Use
  Company Number: US-ABBOTT-12P-163-0908707-00

PATIENT
  Age: 50 None
  Sex: Female
  Weight: 62.65 kg

DRUGS (8)
  1. HUMIRA 40 MG/0.8 ML PEN [Suspect]
     Indication: RHEUMATOID ARTHRITIS
     Dates: start: 201112, end: 201201
  2. SYNTHROID [Concomitant]
     Indication: HYPOTHYROIDISM
  3. EFFEXOR [Concomitant]
     Indication: DEPRESSION
  4. TRAMADOL [Concomitant]
     Indication: PAIN
  5. CLONIDINE [Concomitant]
     Indication: HOT FLUSH
  6. XANAX [Concomitant]
     Indication: SLEEP DISORDER THERAPY
  7. PRAVACOL [Concomitant]
     Indication: BLOOD CHOLESTEROL INCREASED
  8. IMITREX [Concomitant]
     Indication: MIGRAINE

REACTIONS (7)
  - Sinusitis [Recovering/Resolving]
  - Papule [Recovering/Resolving]
  - Sinusitis [Recovering/Resolving]
  - Pharyngitis streptococcal [Recovering/Resolving]
  - Sinus headache [Not Recovered/Not Resolved]
  - Dysgeusia [Recovered/Resolved]
  - Toothache [Recovering/Resolving]
